FAERS Safety Report 4759180-0 (Version None)
Quarter: 2005Q3

REPORT INFORMATION
  Report Type: 
  Country: None (occurrence: None)
  Receive Date: 20050831
  Receipt Date: 20050811
  Transmission Date: 20060218
  Serious: Yes (Other)
  Sender: FDA-Public Use
  Company Number: EWC050845403

PATIENT
  Age: 55 Year
  Sex: Male
  Weight: 74 kg

DRUGS (3)
  1. GEMCITABINE HYDROCHLORIDE-IV (GEMCITABINE) [Suspect]
     Indication: PROSTATE CANCER
     Dosage: 600 MG/M2/2; OTHER
     Route: 050
     Dates: start: 20050427
  2. TAXOTERE [Suspect]
     Indication: PROSTATE CANCER
     Dosage: 75 MG/M2/1; OTHER
     Route: 050
     Dates: start: 20050427
  3. PREDNISOLONE [Concomitant]

REACTIONS (3)
  - EYE DISORDER [None]
  - VENOUS THROMBOSIS [None]
  - VISUAL ACUITY REDUCED [None]
